FAERS Safety Report 5197443-8 (Version None)
Quarter: 2006Q4

REPORT INFORMATION
  Report Type: 
  Country: None (occurrence: None)
  Receive Date: 20060927
  Receipt Date: 20060517
  Transmission Date: 20070319
  Serious: No
  Sender: FDA-Public Use
  Company Number: US-CVT-061067

PATIENT
  Age: 60 Year

DRUGS (2)
  1. RANEXA [Suspect]
     Indication: ANGINA PECTORIS
     Dosage: 500 MG, BID, ORAL
     Route: 048
  2. CYMBALTA [Suspect]
     Dosage: 60 MG, QD,

REACTIONS (4)
  - CHEST PAIN [None]
  - DRUG INTERACTION [None]
  - HYPERTENSION [None]
  - HYPOGLYCAEMIA [None]
